FAERS Safety Report 8513382-6 (Version None)
Quarter: 2012Q3

REPORT INFORMATION
  Report Type: 
  Country: None (occurrence: None)
  Receive Date: 20120717
  Receipt Date: 20120712
  Transmission Date: 20120928
  Serious: Yes (Hospitalization)
  Sender: FDA-Public Use
  Company Number: CA-AMGEN-CANSP2012039567

PATIENT
  Age: 76 Year
  Sex: Female
  Weight: 52 kg

DRUGS (10)
  1. RITUXIMAB [Concomitant]
     Indication: DIFFUSE LARGE B-CELL LYMPHOMA
     Dosage: UNK UNK, Q3WK
     Route: 042
     Dates: start: 20120524
  2. ALLOPURINOL [Concomitant]
     Dosage: 100 MG, UNK
     Route: 048
     Dates: end: 20120628
  3. DOXORUBICIN HCL [Concomitant]
     Indication: DIFFUSE LARGE B-CELL LYMPHOMA
     Dosage: UNK UNK, Q3WK
     Route: 042
     Dates: start: 20120524
  4. PREDNISOLONE [Concomitant]
     Indication: DIFFUSE LARGE B-CELL LYMPHOMA
     Dosage: UNK UNK, Q3WK
     Route: 042
     Dates: start: 20120524
  5. CYCLOPHOSPHAMIDE [Concomitant]
     Indication: DIFFUSE LARGE B-CELL LYMPHOMA
     Dosage: UNK UNK, Q3WK
     Route: 042
     Dates: start: 20120524
  6. PREDNISONE [Concomitant]
     Indication: VOMITING
     Dosage: 100 MG, UNK
     Route: 048
     Dates: start: 20120524
  7. NEUPOGEN [Suspect]
     Indication: CHEMOTHERAPY
  8. VINCRISTINE SULFATE [Concomitant]
     Indication: DIFFUSE LARGE B-CELL LYMPHOMA
     Dosage: UNK UNK, Q3WK
     Route: 042
     Dates: start: 20120524
  9. NEUPOGEN [Suspect]
     Indication: NEUTROPENIA
     Dosage: 300 MUG, UNK
     Route: 058
     Dates: start: 20120616, end: 20120624
  10. ONDANSETRON [Concomitant]
     Indication: VOMITING
     Dosage: 8 MG, BID
     Route: 048
     Dates: start: 20120524

REACTIONS (2)
  - FEBRILE NEUTROPENIA [None]
  - NEUTROPHILIA [None]
